FAERS Safety Report 23830150 (Version 1)
Quarter: 2024Q2

REPORT INFORMATION
  Report Type: Spontaneous
  Country: HR (occurrence: HR)
  Receive Date: 20240508
  Receipt Date: 20240508
  Transmission Date: 20240716
  Serious: Yes (Other)
  Sender: FDA-Public Use
  Company Number: None

PATIENT
  Age: 36 Year
  Sex: Female

DRUGS (6)
  1. XANAX [Suspect]
     Active Substance: ALPRAZOLAM
     Indication: Product used for unknown indication
     Dosage: 10 MILLIGRAM, QD (20 TBL XANAX OF 0.5 MG)
     Route: 048
     Dates: start: 20240309, end: 20240309
  2. QUETIAPINE [Suspect]
     Active Substance: QUETIAPINE
     Indication: Product used for unknown indication
     Dosage: 2000 MILLIGRAM, QD (20 TBL OF QUETIAPINE OF 100 MG)
     Route: 048
     Dates: start: 20240309, end: 20240309
  3. ALPRAZOLAM [Suspect]
     Active Substance: ALPRAZOLAM
     Indication: Product used for unknown indication
     Dosage: 7.5 MILLIGRAM, QD (30 TBL MISAR OF 0.25MG)
     Route: 048
     Dates: start: 20240309, end: 20240309
  4. NITRAZEPAM [Suspect]
     Active Substance: NITRAZEPAM
     Indication: Product used for unknown indication
     Dosage: 50 MILLIGRAM, QD (10 TBL CERSON OF 5 MG)
     Route: 048
     Dates: start: 20240309, end: 20240309
  5. ZOLPIDEM TARTRATE [Suspect]
     Active Substance: ZOLPIDEM TARTRATE
     Indication: Product used for unknown indication
     Dosage: 100 MILLIGRAM, QD (20 TBL SANVAL OF 5 MG)
     Route: 048
     Dates: start: 20240309, end: 20240309
  6. DULOXETINE HYDROCHLORIDE [Suspect]
     Active Substance: DULOXETINE HYDROCHLORIDE
     Indication: Product used for unknown indication
     Dosage: 420 MILLIGRAM, QD (14 CAP DULSEVIA OF 30 MG)
     Route: 048
     Dates: start: 20240309, end: 20240309

REACTIONS (3)
  - Suicide attempt [Unknown]
  - Intentional overdose [Unknown]
  - Loss of consciousness [Unknown]

NARRATIVE: CASE EVENT DATE: 20240309
